FAERS Safety Report 7919989-9 (Version None)
Quarter: 2011Q4

REPORT INFORMATION
  Report Type: 
  Country: None (occurrence: None)
  Receive Date: 20111117
  Receipt Date: 20111107
  Transmission Date: 20120403
  Serious: Yes (Hospitalization, Other)
  Sender: FDA-Public Use
  Company Number: US-AMGEN-USASP2011053609

PATIENT
  Age: 56 Year
  Sex: Male
  Weight: 81 kg

DRUGS (29)
  1. EPOGEN [Suspect]
     Dosage: 10000 IU, 3 TIMES/WK
     Route: 042
     Dates: start: 20090605
  2. ARANESP [Suspect]
     Indication: ANAEMIA
     Dosage: 200 MUG, Q2WK
     Route: 058
     Dates: start: 20110617
  3. LANTUS [Concomitant]
     Dosage: 15 IU, UNK
  4. EPOGEN [Suspect]
     Dosage: 10000 IU, QWK
     Route: 058
     Dates: start: 20090922
  5. VENOFER [Concomitant]
     Dosage: 200 MG, QMO
     Route: 042
     Dates: start: 20110913
  6. FERROUS SULFATE TAB [Concomitant]
     Dosage: 325 MG, TID
     Route: 048
  7. EPOGEN [Suspect]
     Dosage: 10000 IU, QWK
     Route: 058
     Dates: start: 20110315, end: 20110429
  8. LISINOPRIL [Concomitant]
     Dosage: 10 MG, QD
     Route: 048
  9. LORAZEPAM [Concomitant]
     Dosage: 0.5 MG, BID
     Route: 048
  10. ARANESP [Suspect]
     Dosage: 100 MUG, QMO
     Route: 058
     Dates: start: 20110429, end: 20110510
  11. ASPIRIN [Concomitant]
     Dosage: 81 MG, QD
     Route: 048
  12. VENOFER [Concomitant]
     Dosage: 200 MG, QWK
     Dates: start: 20110606
  13. EPOGEN [Suspect]
     Indication: HAEMODIALYSIS
     Dosage: 5000 IU, 3 TIMES/WK
     Route: 042
     Dates: start: 20090512
  14. EPOGEN [Suspect]
     Dosage: 10000 IU, 2 TIMES/WK
     Route: 058
     Dates: start: 20110125, end: 20110315
  15. LIPITOR [Concomitant]
     Dosage: 80 MG, UNK
     Route: 048
  16. COREG [Concomitant]
     Dosage: 10 MG, QD
     Route: 048
  17. VENOFER [Concomitant]
     Dosage: 200 MG, QMO
     Route: 042
     Dates: start: 20091215
  18. EPOGEN [Suspect]
     Dosage: 10000 IU, QWK
     Route: 058
     Dates: start: 20091215
  19. ARANESP [Suspect]
     Dosage: 100 MUG, Q2WK
     Route: 058
     Dates: start: 20110510, end: 20110617
  20. IRON [Concomitant]
  21. AMIODARONE HCL [Concomitant]
     Dosage: 200 MG, QD
     Route: 048
  22. HUMULIN R [Concomitant]
  23. EPOGEN [Suspect]
     Dosage: 7500 IU, QWK
     Route: 058
     Dates: start: 20091013
  24. EPOGEN [Suspect]
     Dosage: 15000 IU, QWK
     Route: 058
     Dates: start: 20101012
  25. LASIX [Concomitant]
     Dosage: 40 MG, QD
     Route: 048
  26. CALCIUM ACETATE [Concomitant]
     Dosage: 667 MG, TID
     Route: 048
  27. RENVELA [Concomitant]
     Dosage: 800 MG, TID
     Route: 048
  28. REGULAR INSULIN [Concomitant]
  29. RENA-VITE [Concomitant]
     Dosage: UNK
     Route: 048

REACTIONS (5)
  - FATIGUE [None]
  - HERNIA [None]
  - NORMOCHROMIC NORMOCYTIC ANAEMIA [None]
  - RESPIRATORY ARREST [None]
  - DRUG INEFFECTIVE [None]
